FAERS Safety Report 15335476 (Version 1)
Quarter: 2018Q4

REPORT INFORMATION
  Report Type: Spontaneous
  Country: CN (occurrence: CN)
  Receive Date: 20180830
  Receipt Date: 20180830
  Transmission Date: 20190204
  Serious: No
  Sender: FDA-Public Use
  Company Number: CN-B. BRAUN MEDICAL INC.-2054482

PATIENT
  Age: 26 Year
  Weight: 49.5 kg

DRUGS (1)
  1. NUTRILIPID I.V. FAT EMULSION [Suspect]
     Active Substance: SOYBEAN OIL
     Route: 041
     Dates: start: 20180307, end: 20180309

REACTIONS (2)
  - Skin irritation [Recovering/Resolving]
  - Formication [Recovering/Resolving]

NARRATIVE: CASE EVENT DATE: 20180309
